FAERS Safety Report 5821472-1 (Version None)
Quarter: 2008Q3

REPORT INFORMATION
  Report Type: 
  Country: None (occurrence: None)
  Receive Date: 20080724
  Receipt Date: 20080715
  Transmission Date: 20090109
  Serious: Yes (Hospitalization)
  Sender: FDA-Public Use
  Company Number: B0529372A

PATIENT
  Age: 51 Year
  Sex: Female
  Weight: 59 kg

DRUGS (6)
  1. SERETIDE DISKUS [Suspect]
     Indication: ASTHMA
     Dosage: 1PUFF TWICE PER DAY
     Route: 055
     Dates: start: 20030101
  2. PREZISTA [Suspect]
     Indication: HIV INFECTION
     Dosage: 600MG TWICE PER DAY
     Route: 048
     Dates: start: 20080511
  3. NORVIR [Suspect]
     Indication: HIV INFECTION
     Route: 048
     Dates: start: 20080511
  4. KIVEXA [Concomitant]
     Indication: HIV INFECTION
     Route: 065
     Dates: start: 20080511
  5. RALTEGRAVIR [Concomitant]
     Indication: HIV INFECTION
     Dosage: 400MG TWICE PER DAY
     Route: 065
     Dates: start: 20080511
  6. LANTUS [Concomitant]
     Indication: INSULIN-REQUIRING TYPE 2 DIABETES MELLITUS
     Route: 065

REACTIONS (11)
  - ACID BASE BALANCE ABNORMAL [None]
  - ADRENAL INSUFFICIENCY [None]
  - CUSHINGOID [None]
  - DIABETES MELLITUS INADEQUATE CONTROL [None]
  - GLYCOSURIA [None]
  - HYPERGLYCAEMIA [None]
  - LIPOHYPERTROPHY [None]
  - POLYDIPSIA [None]
  - POLYURIA [None]
  - PROTEINURIA [None]
  - SKIN STRIAE [None]
